FAERS Safety Report 6925786-3 (Version None)
Quarter: 2010Q3

REPORT INFORMATION
  Report Type: 
  Country: None (occurrence: None)
  Receive Date: 20100816
  Receipt Date: 20100811
  Transmission Date: 20110219
  Serious: Yes (Life-Threatening, Hospitalization)
  Sender: FDA-Public Use
  Company Number: B0669865A

PATIENT
  Age: 80 Year
  Sex: Female

DRUGS (6)
  1. DIGOXIN [Suspect]
  2. COREG [Suspect]
     Indication: HYPERTENSION
     Dosage: 80MG PER DAY
     Route: 048
     Dates: start: 20090318
  3. ALLOPURINOL [Suspect]
     Indication: PRODUCT USED FOR UNKNOWN INDICATION
  4. DIOVAN [Suspect]
     Indication: HYPERTENSION
     Dosage: 80MG PER DAY
     Route: 048
     Dates: start: 20090828
  5. BLINDED TRIAL MEDICATION [Suspect]
     Indication: CEREBROVASCULAR ACCIDENT PROPHYLAXIS
     Route: 048
     Dates: start: 20071128
  6. POTASSIUM [Concomitant]
     Indication: HYPERTENSION
     Route: 048

REACTIONS (2)
  - INTESTINAL OBSTRUCTION [None]
  - NEPHROLITHIASIS [None]
